FAERS Safety Report 8130450-1 (Version None)
Quarter: 2012Q1

REPORT INFORMATION
  Report Type: 
  Country: None (occurrence: None)
  Receive Date: 20120210
  Receipt Date: 20120203
  Transmission Date: 20120608
  Serious: Yes (Other)
  Sender: FDA-Public Use
  Company Number: NO-MERCK-1111NOR00006

PATIENT
  Age: 73 Year
  Sex: Female

DRUGS (1)
  1. FOSAMAX [Suspect]
     Indication: OSTEOPOROSIS
     Route: 048
     Dates: start: 19940101

REACTIONS (4)
  - FEMUR FRACTURE [None]
  - ULNA FRACTURE [None]
  - PAIN IN EXTREMITY [None]
  - OSTEOPENIA [None]
